FAERS Safety Report 11821041 (Version 1)
Quarter: 2015Q4

REPORT INFORMATION
  Report Type: Spontaneous
  Country: US (occurrence: US)
  Receive Date: 20151210
  Receipt Date: 20151210
  Transmission Date: 20160305
  Serious: No
  Sender: FDA-Public Use
  Company Number: US-JNJFOC-20150801414

PATIENT
  Sex: Female

DRUGS (9)
  1. ALPRAZOLAM. [Concomitant]
     Active Substance: ALPRAZOLAM
  2. FUROSEMIDE. [Concomitant]
     Active Substance: FUROSEMIDE
  3. ASPIRIN (E.C.) [Concomitant]
     Active Substance: ASPIRIN
  4. XANAX [Concomitant]
     Active Substance: ALPRAZOLAM
  5. INDERAL [Concomitant]
     Active Substance: PROPRANOLOL HYDROCHLORIDE
  6. VALTREX [Concomitant]
     Active Substance: VALACYCLOVIR HYDROCHLORIDE
  7. CYANOCOBALAMIN. [Concomitant]
     Active Substance: CYANOCOBALAMIN
  8. ALEVE [Concomitant]
     Active Substance: NAPROXEN SODIUM
  9. IMBRUVICA [Suspect]
     Active Substance: IBRUTINIB
     Indication: CHRONIC LYMPHOCYTIC LEUKAEMIA
     Route: 048
     Dates: start: 20150325

REACTIONS (3)
  - Gastritis [Unknown]
  - Arthralgia [Unknown]
  - Gastroenteritis [Unknown]

NARRATIVE: CASE EVENT DATE: 2015
